FAERS Safety Report 8278802 (Version 5)
Quarter: 2019Q4

REPORT INFORMATION
  Report Type: Report from Study
  Country: US (occurrence: US)
  Receive Date: 20111207
  Receipt Date: 20191018
  Transmission Date: 20200122
  Serious: Yes (Hospitalization)
  Sender: FDA-Public Use
  Company Number: US-ROCHE-1018508

PATIENT
  Age: 49 Year
  Sex: Male
  Weight: 92.3 kg

DRUGS (39)
  1. BEVACIZUMAB. [Suspect]
     Active Substance: BEVACIZUMAB
     Indication: GASTROOESOPHAGEAL CANCER
     Dosage: DATE OF MOST RECENT DOSE OF BEVACIZUMAB PRIOR TO SAE ONSET: 14/FEB/2012,
     Route: 065
     Dates: start: 20110517, end: 20110607
  2. PRILOSEC [Concomitant]
     Active Substance: OMEPRAZOLE MAGNESIUM
     Route: 065
  3. PREDNISONE. [Concomitant]
     Active Substance: PREDNISONE
     Route: 065
  4. EMEND [Concomitant]
     Active Substance: APREPITANT
  5. CRESTOR [Concomitant]
     Active Substance: ROSUVASTATIN CALCIUM
  6. EMLA [LIDOCAINE;PRILOCAINE] [Concomitant]
  7. HYDROCHLOROTHIAZIDE. [Concomitant]
     Active Substance: HYDROCHLOROTHIAZIDE
  8. TRASTUZUMAB. [Suspect]
     Active Substance: TRASTUZUMAB
     Route: 065
     Dates: start: 20110517, end: 20110607
  9. CAPECITABINE. [Suspect]
     Active Substance: CAPECITABINE
     Route: 048
     Dates: start: 20110517, end: 20110607
  10. METOPROLOL. [Concomitant]
     Active Substance: METOPROLOL
  11. METHYLPHENIDATE. [Concomitant]
     Active Substance: METHYLPHENIDATE
  12. BENTYL [Concomitant]
     Active Substance: DICYCLOMINE HYDROCHLORIDE
  13. DEXAMETHASONE. [Concomitant]
     Active Substance: DEXAMETHASONE
  14. ONDANSETRON [Concomitant]
     Active Substance: ONDANSETRON
  15. TRASTUZUMAB. [Suspect]
     Active Substance: TRASTUZUMAB
     Dosage: LAST DOSE RECIEVED ON 14 FEB 2012.
     Route: 065
     Dates: end: 20120214
  16. OXALIPLATIN. [Suspect]
     Active Substance: OXALIPLATIN
     Indication: GASTROOESOPHAGEAL CANCER
     Route: 065
     Dates: start: 20110517, end: 20111115
  17. ZOFRAN [Concomitant]
     Active Substance: ONDANSETRON HYDROCHLORIDE
     Route: 065
  18. CITALOPRAM [Concomitant]
     Active Substance: CITALOPRAM HYDROBROMIDE
  19. LANTUS [Concomitant]
     Active Substance: INSULIN GLARGINE
  20. PROCHLORPERAZINE. [Concomitant]
     Active Substance: PROCHLORPERAZINE
     Route: 065
  21. DECADRON [Concomitant]
     Active Substance: DEXAMETHASONE
     Route: 065
  22. MSIR [Concomitant]
     Active Substance: MORPHINE SULFATE
  23. RITALIN [Concomitant]
     Active Substance: METHYLPHENIDATE HYDROCHLORIDE
  24. LOMOTIL [Concomitant]
     Active Substance: ATROPINE SULFATE\DIPHENOXYLATE HYDROCHLORIDE
  25. METOPROLOL TARTRATE. [Concomitant]
     Active Substance: METOPROLOL TARTRATE
  26. TRASTUZUMAB. [Suspect]
     Active Substance: TRASTUZUMAB
     Indication: GASTROOESOPHAGEAL CANCER
     Dosage: LAST DOSE RECIEVED ON 14 FEB 2012.
     Route: 065
     Dates: start: 20110510, end: 20111115
  27. OXYCODONE [Concomitant]
     Active Substance: OXYCODONE
     Route: 065
  28. OMEPRAZOLE. [Concomitant]
     Active Substance: OMEPRAZOLE
  29. PERCOCET [Concomitant]
     Active Substance: ACETAMINOPHEN\OXYCODONE HYDROCHLORIDE
  30. CAPECITABINE. [Suspect]
     Active Substance: CAPECITABINE
     Route: 048
     Dates: end: 20120226
  31. DICYCLOMINE [DICYCLOVERINE] [Concomitant]
     Route: 065
  32. CAPECITABINE. [Suspect]
     Active Substance: CAPECITABINE
     Indication: GASTROOESOPHAGEAL CANCER
     Route: 048
     Dates: start: 20110517, end: 20111129
  33. ACTOS [Concomitant]
     Active Substance: PIOGLITAZONE HYDROCHLORIDE
  34. POTASSIUM CHLORIDE. [Concomitant]
     Active Substance: POTASSIUM CHLORIDE
     Route: 065
  35. OXALIPLATIN. [Suspect]
     Active Substance: OXALIPLATIN
     Route: 065
     Dates: start: 20110517, end: 20110620
  36. LISINOPRIL. [Concomitant]
     Active Substance: LISINOPRIL
  37. LORAZEPAM. [Concomitant]
     Active Substance: LORAZEPAM
     Route: 065
  38. TOPROL XL [Concomitant]
     Active Substance: METOPROLOL SUCCINATE
  39. GLYBURIDE. [Concomitant]
     Active Substance: GLYBURIDE

REACTIONS (12)
  - Dehydration [Recovered/Resolved]
  - Pneumonia [Recovered/Resolved]
  - Nausea [Recovered/Resolved]
  - Vomiting [Recovered/Resolved]
  - Pneumothorax [Unknown]
  - Dyspnoea [Recovered/Resolved]
  - Odynophagia [Unknown]
  - Pneumomediastinum [Unknown]
  - Nausea [Unknown]
  - Vomiting [Unknown]
  - Decreased appetite [Unknown]
  - Diarrhoea [Recovered/Resolved]

NARRATIVE: CASE EVENT DATE: 20110714
